FAERS Safety Report 23250960 (Version 2)
Quarter: 2024Q2

REPORT INFORMATION
  Report Type: Spontaneous
  Country: JP (occurrence: JP)
  Receive Date: 20231201
  Receipt Date: 20240405
  Transmission Date: 20240716
  Serious: Yes (Death, Other)
  Sender: FDA-Public Use
  Company Number: JP-TAKEDA-2023TJP015906

PATIENT

DRUGS (3)
  1. ZEJULA [Suspect]
     Active Substance: NIRAPARIB
     Indication: Ovarian cancer
     Dosage: 200 MG, QD
     Route: 048
     Dates: start: 20230711, end: 20230810
  2. KYTRIL [Concomitant]
     Active Substance: GRANISETRON HYDROCHLORIDE
     Indication: Prophylaxis of nausea and vomiting
     Dosage: 2 MG, QD
     Route: 048
     Dates: start: 20230711, end: 20230810
  3. EDOXABAN TOSYLATE [Concomitant]
     Active Substance: EDOXABAN TOSYLATE
     Indication: Deep vein thrombosis
     Dosage: 30 MG, QD
     Route: 048
     Dates: start: 20230131, end: 20230829

REACTIONS (2)
  - Ovarian cancer [Fatal]
  - Malignant ascites [Fatal]

NARRATIVE: CASE EVENT DATE: 20230919
